FAERS Safety Report 12929354 (Version 1)
Quarter: 2016Q4

REPORT INFORMATION
  Report Type: Spontaneous
  Country: SE (occurrence: SE)
  Receive Date: 20161110
  Receipt Date: 20161110
  Transmission Date: 20170207
  Serious: Yes (Hospitalization, Other)
  Sender: FDA-Public Use
  Company Number: SE-GLAXOSMITHKLINE-SE2016GSK165104

PATIENT
  Age: 22 Year
  Sex: Female

DRUGS (4)
  1. CETIRIZIN [Suspect]
     Active Substance: CETIRIZINE HYDROCHLORIDE
     Indication: SUICIDE ATTEMPT
     Dosage: 50 DF DOSAGE FORM
     Dates: start: 20160720, end: 20160720
  2. LAMOTRIGINE. [Suspect]
     Active Substance: LAMOTRIGINE
     Indication: SUICIDE ATTEMPT
     Dosage: 5 DF DOSAGE FORM
  3. PANODIL ZAPP [Suspect]
     Active Substance: ACETAMINOPHEN
     Indication: SUICIDE ATTEMPT
     Dosage: 15 DF DOSAGE FORM
     Route: 048
     Dates: start: 20160720, end: 20160720
  4. METRONIDAZOL [Suspect]
     Active Substance: METRONIDAZOLE
     Indication: SUICIDE ATTEMPT
     Dosage: 25 DF DOSAGE FORM
     Dates: start: 20160720, end: 20160720

REACTIONS (5)
  - Toxicity to various agents [Recovered/Resolved]
  - Blood lactic acid increased [Recovered/Resolved]
  - Chromaturia [Recovered/Resolved]
  - Suicidal ideation [Recovered/Resolved]
  - Intentional overdose [Recovered/Resolved]

NARRATIVE: CASE EVENT DATE: 20160720
